FAERS Safety Report 23643264 (Version 1)
Quarter: 2024Q1

REPORT INFORMATION
  Report Type: Spontaneous
  Country: US (occurrence: US)
  Receive Date: 20240318
  Receipt Date: 20240318
  Transmission Date: 20240410
  Serious: No
  Sender: FDA-Public Use
  Company Number: US-Covis Pharma GmbH-2024COV00243

PATIENT
  Age: 76 Year
  Sex: Female

DRUGS (5)
  1. RILUZOLE [Suspect]
     Active Substance: RILUZOLE
     Route: 048
  2. RELYVRIO [Suspect]
     Active Substance: SODIUM PHENYLBUTYRATE\TAURURSODIOL
     Dosage: 1 DOSAGE FORM 1 SACHET ONCE DAILY FOR 3WKS, THEN 1 SACHET TWICE DAILY., 2/DAYS
     Route: 048
     Dates: start: 202401
  3. RELYVRIO [Suspect]
     Active Substance: SODIUM PHENYLBUTYRATE\TAURURSODIOL
     Route: 048
     Dates: start: 202402
  4. RADICAVA ORS [Suspect]
     Active Substance: EDARAVONE
     Indication: Amyotrophic lateral sclerosis
     Dosage: QD FOR 10 OUT OF 14 DAYS AND THEN 14 DAYS OFF
     Route: 048
     Dates: start: 202401
  5. RADICAVA ORS [Suspect]
     Active Substance: EDARAVONE
     Dosage: MAINTENANCE DOSE
     Route: 048
     Dates: start: 202402

REACTIONS (3)
  - Tinnitus [Unknown]
  - Hypertension [Unknown]
  - Intentional dose omission [Unknown]

NARRATIVE: CASE EVENT DATE: 20240201
